FAERS Safety Report 16680893 (Version 1)
Quarter: 2019Q3

REPORT INFORMATION
  Report Type: Spontaneous
  Country: CA (occurrence: CA)
  Receive Date: 20190808
  Receipt Date: 20190808
  Transmission Date: 20191004
  Serious: Yes (Other)
  Sender: FDA-Public Use
  Company Number: CA-ORION CORPORATION ORION PHARMA-TREX2019-2663

PATIENT
  Age: 52 Year
  Sex: Female

DRUGS (13)
  1. METHOTREXATE (TRADE NAME UNKNOWN) [Suspect]
     Active Substance: METHOTREXATE
     Route: 051
  2. PREDNISONE. [Suspect]
     Active Substance: PREDNISONE
     Route: 065
  3. ADALIMUMAB [Concomitant]
     Active Substance: ADALIMUMAB
     Indication: SPONDYLITIS
     Route: 065
  4. CICLOSPORIN [Suspect]
     Active Substance: CYCLOSPORINE
     Indication: PSORIATIC ARTHROPATHY
     Route: 065
  5. METHOTREXATE (TRADE NAME UNKNOWN) [Suspect]
     Active Substance: METHOTREXATE
     Indication: PRODUCT USED FOR UNKNOWN INDICATION
     Route: 048
  6. PREDNISONE. [Suspect]
     Active Substance: PREDNISONE
     Indication: AORTITIS
     Route: 065
  7. MORPHINE SULFATE. [Suspect]
     Active Substance: MORPHINE SULFATE
     Indication: ABDOMINAL PAIN
     Route: 065
  8. CICLOSPORIN [Suspect]
     Active Substance: CYCLOSPORINE
     Indication: SPONDYLITIS
     Route: 065
  9. PREDNISONE. [Suspect]
     Active Substance: PREDNISONE
     Indication: ABDOMINAL PAIN
     Route: 065
  10. PREDNISONE. [Suspect]
     Active Substance: PREDNISONE
     Route: 065
  11. ADALIMUMAB [Concomitant]
     Active Substance: ADALIMUMAB
     Indication: PSORIATIC ARTHROPATHY
  12. INFLIXIMAB [Concomitant]
     Active Substance: INFLIXIMAB
     Indication: IRITIS
     Route: 065
  13. CICLOSPORIN [Suspect]
     Active Substance: CYCLOSPORINE
     Indication: ABDOMINAL PAIN

REACTIONS (5)
  - Nausea [Unknown]
  - Nephropathy toxic [Unknown]
  - Drug intolerance [Unknown]
  - Drug ineffective [Unknown]
  - Blindness [Unknown]
